FAERS Safety Report 24833616 (Version 1)
Quarter: 2025Q1

REPORT INFORMATION
  Report Type: Spontaneous
  Country: DE (occurrence: DE)
  Receive Date: 20250112
  Receipt Date: 20250112
  Transmission Date: 20250408
  Serious: Yes (Other)
  Sender: DEXCEL
  Company Number: None

PATIENT
  Sex: Female

DRUGS (14)
  1. AMLODIPINE [Suspect]
     Active Substance: AMLODIPINE BESYLATE
     Dosage: 1-0-1
  2. BISOPROLOL [Suspect]
     Active Substance: BISOPROLOL
     Dosage: 0-0-1
  3. ELIQUIS [Suspect]
     Active Substance: APIXABAN
     Dosage: 1-0-1
  4. METAMIZOLE SODIUM [Suspect]
     Active Substance: METAMIZOLE SODIUM
     Dosage: 1-1-1
  5. HYDROCHLOROTHIAZIDE\OLMESARTAN MEDOXOMIL [Suspect]
     Active Substance: HYDROCHLOROTHIAZIDE\OLMESARTAN MEDOXOMIL
     Dosage: 1-0-0
  6. PANTOPRAZOLE SODIUM [Suspect]
     Active Substance: PANTOPRAZOLE SODIUM
     Dosage: 1-0-0
  7. SIMVASTATIN [Suspect]
     Active Substance: SIMVASTATIN
     Dosage: 0-0-1
  8. NALOXONE HYDROCHLORIDE\TILIDINE HYDROCHLORIDE [Suspect]
     Active Substance: NALOXONE HYDROCHLORIDE\TILIDINE HYDROCHLORIDE
     Dosage: 1-0-1
  9. CHOLECALCIFEROL [Suspect]
     Active Substance: CHOLECALCIFEROL
     Dosage: 0-1-0
  10. PROLIA [Concomitant]
     Active Substance: DENOSUMAB
     Indication: Osteoporosis
  11. CHOLECALCIFEROL [Concomitant]
     Active Substance: CHOLECALCIFEROL
     Indication: Osteoporosis
  12. PREGABALIN [Concomitant]
     Active Substance: PREGABALIN
     Dosage: 0-0-1
     Dates: end: 20241109
  13. PREGABALIN [Concomitant]
     Active Substance: PREGABALIN
     Dosage: 1-0-1
     Dates: start: 20241110, end: 20241112
  14. TORSEMIDE [Suspect]
     Active Substance: TORSEMIDE
     Dosage: 1-0-0

REACTIONS (6)
  - Sleep disorder [Unknown]
  - Sudden onset of sleep [Unknown]
  - Somnolence [Unknown]
  - Disturbance in attention [Unknown]
  - General physical health deterioration [Unknown]
  - Gamma-glutamyltransferase increased [Unknown]
